FAERS Safety Report 11719101 (Version 1)
Quarter: 2015Q4

REPORT INFORMATION
  Report Type: Report from Study
  Country: None (occurrence: US)
  Receive Date: 20151110
  Receipt Date: 20151110
  Transmission Date: 20160304
  Serious: No
  Sender: FDA-Public Use
  Company Number: US-VANDA PHARMACEUTICALS, INC-2015TASUS000875

PATIENT
  Age: 40 Year
  Sex: Female

DRUGS (1)
  1. HETLIOZ [Suspect]
     Active Substance: TASIMELTEON
     Indication: CIRCADIAN RHYTHM SLEEP DISORDER
     Dosage: 20 MG, QD
     Route: 048
     Dates: start: 201508

REACTIONS (4)
  - Hallucination, visual [Unknown]
  - Disorientation [Unknown]
  - Confusional state [Unknown]
  - Crying [Unknown]

NARRATIVE: CASE EVENT DATE: 201508
